FAERS Safety Report 4454643-X (Version None)
Quarter: 2004Q3

REPORT INFORMATION
  Report Type: 
  Country: None (occurrence: None)
  Receive Date: 20040826
  Receipt Date: 20040630
  Transmission Date: 20050211
  Serious: No
  Sender: FDA-Public Use
  Company Number: WAES 0407USA00088

PATIENT
  Age: 81 Year
  Sex: Male

DRUGS (7)
  1. ZETIA [Suspect]
     Indication: BLOOD CHOLESTEROL INCREASED
     Dosage: 10 MG DAILY PO
     Route: 048
     Dates: start: 20040601
  2. ALEVE [Concomitant]
  3. ALPHAGAN [Concomitant]
  4. ATACAND [Concomitant]
  5. HYDRODIURIL [Concomitant]
  6. PLAVIX [Concomitant]
  7. TRUSOPT [Concomitant]

REACTIONS (1)
  - PAIN IN EXTREMITY [None]
